FAERS Safety Report 4319053-4 (Version None)
Quarter: 2004Q1

REPORT INFORMATION
  Report Type: 
  Country: None (occurrence: None)
  Receive Date: 20040316
  Receipt Date: 20040302
  Transmission Date: 20041129
  Serious: No
  Sender: FDA-Public Use
  Company Number: 2004AP01384

PATIENT
  Age: 67 Year
  Sex: Male

DRUGS (11)
  1. IRESSA [Suspect]
     Indication: LUNG ADENOCARCINOMA
     Dosage: 250 MG DAILY PO
     Route: 048
     Dates: start: 20030711, end: 20030830
  2. IRESSA [Suspect]
     Indication: NON-SMALL CELL LUNG CANCER
     Dosage: 250 MG DAILY PO
     Route: 048
     Dates: start: 20030711, end: 20030830
  3. CLARITHROMYCIN [Concomitant]
  4. ASTOMIN [Concomitant]
  5. NEUZYM [Concomitant]
  6. ACINON [Concomitant]
  7. CARBOPLATIN [Concomitant]
  8. PACLITAXEL [Concomitant]
  9. CISPLATIN [Concomitant]
  10. GEMCITABINE [Concomitant]
  11. VINORELBINE TARTRATE [Concomitant]

REACTIONS (3)
  - ANGINA UNSTABLE [None]
  - DEHYDRATION [None]
  - RENAL IMPAIRMENT [None]
